FAERS Safety Report 4612646-6 (Version None)
Quarter: 2005Q1

REPORT INFORMATION
  Report Type: 
  Country: None (occurrence: None)
  Receive Date: 20050316
  Receipt Date: 20050316
  Transmission Date: 20050727
  Serious: No
  Sender: FDA-Public Use
  Company Number: None

PATIENT
  Sex: Female
  Weight: 87.0906 kg

DRUGS (1)
  1. SOTALOL HCL [Suspect]
     Indication: HYPERTENSION
     Dosage: 80MG  TWICE A DAY ORAL
     Route: 048
     Dates: start: 20041222, end: 20050307

REACTIONS (2)
  - ALOPECIA [None]
  - HYPOTRICHOSIS [None]
